FAERS Safety Report 5335026-7 (Version None)
Quarter: 2007Q2

REPORT INFORMATION
  Report Type: 
  Country: None (occurrence: None)
  Receive Date: 20070525
  Receipt Date: 20070517
  Transmission Date: 20071010
  Serious: Yes (Other)
  Sender: FDA-Public Use
  Company Number: US-SANOFI-SYNTHELABO-A03200703140

PATIENT
  Sex: Female
  Weight: 95.3 kg

DRUGS (5)
  1. GLUCOPHAGE [Concomitant]
     Dosage: UNK
     Route: 048
  2. TOPAMAX [Concomitant]
     Dosage: UNK
     Route: 048
  3. PROZAC [Concomitant]
     Dosage: UNK
     Route: 048
  4. PROZAC [Concomitant]
     Dosage: UNK
     Route: 048
  5. AMBIEN [Suspect]
     Indication: INSOMNIA
     Route: 048
     Dates: start: 20061201, end: 20070512

REACTIONS (3)
  - AMNESIA [None]
  - IMPAIRED DRIVING ABILITY [None]
  - ROAD TRAFFIC ACCIDENT [None]
